FAERS Safety Report 18456557 (Version 1)
Quarter: 2020Q4

REPORT INFORMATION
  Report Type: Spontaneous
  Country: AU (occurrence: AU)
  Receive Date: 20201103
  Receipt Date: 20201103
  Transmission Date: 20210114
  Serious: Yes (Other)
  Sender: FDA-Public Use
  Company Number: AU-ACCORD-206925

PATIENT
  Age: 64 Year
  Sex: Male

DRUGS (7)
  1. MEMANTINE/MEMANTINE HYDROCHLORIDE [Concomitant]
     Active Substance: MEMANTINE HYDROCHLORIDE
     Indication: OBSESSIVE-COMPULSIVE DISORDER
  2. ONDANSETRON [Concomitant]
     Active Substance: ONDANSETRON
     Indication: OBSESSIVE-COMPULSIVE DISORDER
  3. AMISULPRIDE [Concomitant]
     Active Substance: AMISULPRIDE
  4. CLOZAPINE. [Suspect]
     Active Substance: CLOZAPINE
     Indication: PSYCHOTIC SYMPTOM
  5. VALPROIC ACID. [Concomitant]
     Active Substance: VALPROIC ACID
     Indication: PSYCHOTIC SYMPTOM
  6. CLOMIPRAMINE [Concomitant]
     Active Substance: CLOMIPRAMINE
     Indication: OBSESSIVE-COMPULSIVE DISORDER
  7. ONDANSETRON [Concomitant]
     Active Substance: ONDANSETRON
     Indication: OBSESSIVE-COMPULSIVE DISORDER

REACTIONS (2)
  - Obsessive-compulsive disorder [Unknown]
  - Condition aggravated [Unknown]
